FAERS Safety Report 12082921 (Version 1)
Quarter: 2016Q1

REPORT INFORMATION
  Report Type: Spontaneous
  Country: US (occurrence: None)
  Receive Date: 20160216
  Receipt Date: 20160216
  Transmission Date: 20160526
  Serious: Yes (Other)
  Sender: FDA-Public Use
  Company Number: None

PATIENT
  Age: 61 Year
  Sex: Female
  Weight: 71.67 kg

DRUGS (1)
  1. ESOMEPRAZOLE 40 MG [Suspect]
     Active Substance: ESOMEPRAZOLE
     Indication: GASTROOESOPHAGEAL REFLUX DISEASE
     Route: 048
     Dates: start: 20151022

REACTIONS (9)
  - Vomiting [None]
  - Flushing [None]
  - Vein disorder [None]
  - Asthenia [None]
  - Thrombosis [None]
  - Rash [None]
  - Hyperhidrosis [None]
  - Hypertension [None]
  - Palpitations [None]

NARRATIVE: CASE EVENT DATE: 20151024
